FAERS Safety Report 11717831 (Version 1)
Quarter: 2015Q4

REPORT INFORMATION
  Report Type: Spontaneous
  Country: US (occurrence: None)
  Receive Date: 20151109
  Receipt Date: 20151109
  Transmission Date: 20160304
  Serious: No
  Sender: FDA-Public Use
  Company Number: None

PATIENT
  Age: 74 Year
  Sex: Female

DRUGS (12)
  1. FEXOFENADINE [Concomitant]
     Active Substance: FEXOFENADINE\FEXOFENADINE HYDROCHLORIDE
  2. OXAZEPAM. [Concomitant]
     Active Substance: OXAZEPAM
  3. HYPROCELE FIBER [Concomitant]
  4. MELOXICAM. [Suspect]
     Active Substance: MELOXICAM
     Indication: FIBROMYALGIA
     Dates: start: 20140205, end: 20140422
  5. DOCUSATE [Concomitant]
     Active Substance: DOCUSATE
  6. MELOXICAM. [Suspect]
     Active Substance: MELOXICAM
     Indication: ARTHRALGIA
     Dates: start: 20140205, end: 20140422
  7. MAGNESIUM POTASSIUM [Concomitant]
  8. PREDNISONE. [Concomitant]
     Active Substance: PREDNISONE
  9. ROPINIROLE. [Concomitant]
     Active Substance: ROPINIROLE
  10. LEVOTHYYROXIN [Concomitant]
  11. RASAQILINE [Concomitant]
  12. BIFIDOBACTERIUM [Concomitant]
     Active Substance: BIFIDOBACTERIUM LONGUM

REACTIONS (4)
  - Alanine aminotransferase increased [None]
  - Aspartate aminotransferase increased [None]
  - Blood alkaline phosphatase increased [None]
  - Blood bilirubin abnormal [None]

NARRATIVE: CASE EVENT DATE: 20140422
